FAERS Safety Report 8374045-3 (Version None)
Quarter: 2012Q2

REPORT INFORMATION
  Report Type: 
  Country: None (occurrence: None)
  Receive Date: 20120517
  Receipt Date: 20120517
  Transmission Date: 20120825
  Serious: Yes (Hospitalization)
  Sender: FDA-Public Use
  Company Number: None

PATIENT
  Age: 80 Year
  Sex: Male
  Weight: 73 kg

DRUGS (5)
  1. XARELTO [Suspect]
     Indication: ATRIAL FIBRILLATION
     Dosage: 20 MG DAILY PO
     Route: 048
  2. AMIODARONE HCL [Concomitant]
  3. CRESTOR 10MG PO QHS [Concomitant]
  4. FOLIC ACID 1 MG PO QD [Concomitant]
  5. SPIRONOLACTONE 12.5MG PO QD [Concomitant]

REACTIONS (1)
  - EPISTAXIS [None]
